FAERS Safety Report 11337896 (Version 1)
Quarter: 2015Q3

REPORT INFORMATION
  Report Type: Spontaneous
  Country: US (occurrence: US)
  Receive Date: 20150803
  Receipt Date: 20150803
  Transmission Date: 20151125
  Serious: Yes (Other)
  Sender: FDA-Public Use
  Company Number: US-ELI_LILLY_AND_COMPANY-US200911000571

PATIENT
  Age: 13 Year
  Sex: Female

DRUGS (2)
  1. ZYPREXA [Suspect]
     Active Substance: OLANZAPINE
     Indication: EMOTIONAL DISORDER
     Dosage: 15 MG, EACH EVENING
     Route: 048
     Dates: start: 200611, end: 20091029
  2. VYVANSE [Concomitant]
     Active Substance: LISDEXAMFETAMINE DIMESYLATE
     Dosage: 40 MG, DAILY (1/D)
     Dates: start: 2008, end: 20091029

REACTIONS (6)
  - Streptococcus test [Unknown]
  - Pancreatitis acute [Recovered/Resolved]
  - Off label use [Recovered/Resolved]
  - Blood triglycerides increased [Unknown]
  - Chorea [Recovering/Resolving]
  - Skin discolouration [Unknown]

NARRATIVE: CASE EVENT DATE: 200611
